FAERS Safety Report 15220650 (Version 2)
Quarter: 2018Q4

REPORT INFORMATION
  Report Type: Spontaneous
  Country: FR (occurrence: FR)
  Receive Date: 20180731
  Receipt Date: 20180815
  Transmission Date: 20190204
  Serious: Yes (Hospitalization, Other)
  Sender: FDA-Public Use
  Company Number: FR-TAIHO ONCOLOGY  INC-IM-2018-00016

PATIENT
  Age: 54 Year
  Sex: Male
  Weight: 50 kg

DRUGS (2)
  1. FRAXIPARINE [Concomitant]
     Active Substance: NADROPARIN CALCIUM
     Indication: THROMBOSIS PROPHYLAXIS
     Dosage: 1 DF, QD
     Route: 065
  2. LONSURF [Suspect]
     Active Substance: TIPIRACIL HYDROCHLORIDE\TRIFLURIDINE
     Indication: COLORECTAL CANCER METASTATIC
     Dosage: 60 MG (UNK MG/M2) BID, ON DAYS 1-5 AND 8-12 OF EACH 28-DAY CYCLE
     Route: 048
     Dates: start: 201712, end: 20180701

REACTIONS (11)
  - Eating disorder symptom [Recovering/Resolving]
  - Nausea [Recovering/Resolving]
  - Pyrexia [Recovered/Resolved]
  - Pain [Recovering/Resolving]
  - Haemoglobin decreased [Unknown]
  - Infection [Recovered/Resolved]
  - General physical condition [Recovering/Resolving]
  - Hypokalaemia [Recovered/Resolved]
  - Vomiting [Recovering/Resolving]
  - Oral candidiasis [Recovering/Resolving]
  - C-reactive protein increased [Not Recovered/Not Resolved]

NARRATIVE: CASE EVENT DATE: 201712
